FAERS Safety Report 8938590 (Version 1)
Quarter: 2012Q4

REPORT INFORMATION
  Report Type: Spontaneous
  Country: US (occurrence: None)
  Receive Date: 20121129
  Receipt Date: 20121129
  Transmission Date: 20130627
  Serious: Yes (Other)
  Sender: FDA-Public Use
  Company Number: None

PATIENT
  Age: 58 Year
  Sex: Female
  Weight: 52.16 kg

DRUGS (2)
  1. MONTELUKAST SODIUM [Suspect]
     Indication: ASTHMA
     Route: 048
     Dates: start: 20120817, end: 20120817
  2. MONTELUKAST SODIUM [Suspect]
     Indication: SARCOIDOSIS
     Route: 048
     Dates: start: 20120817, end: 20120817

REACTIONS (3)
  - Dizziness [None]
  - Disorientation [None]
  - Anxiety [None]
